FAERS Safety Report 4957351-1 (Version None)
Quarter: 2006Q1

REPORT INFORMATION
  Report Type: 
  Country: None (occurrence: None)
  Receive Date: 20060327
  Receipt Date: 20060313
  Transmission Date: 20060701
  Serious: Yes (Other)
  Sender: FDA-Public Use
  Company Number: 200610261BFR

PATIENT
  Sex: Female

DRUGS (2)
  1. ASPIRIN [Suspect]
     Indication: SCIATICA
  2. DICLOFENAC [Suspect]
     Indication: SCIATICA

REACTIONS (2)
  - DRUG EXPOSURE DURING PREGNANCY [None]
  - INTRA-UTERINE DEATH [None]
